FAERS Safety Report 20015478 (Version 1)
Quarter: 2021Q4

REPORT INFORMATION
  Report Type: Spontaneous
  Country: US (occurrence: None)
  Receive Date: 20211031
  Receipt Date: 20211031
  Transmission Date: 20220303
  Serious: Yes (Other)
  Sender: FDA-Public Use
  Company Number: None

PATIENT
  Age: 29 Year
  Sex: Female
  Weight: 72 kg

DRUGS (1)
  1. ARTNATURALS SCENT FREE HAND SANITIZER [Suspect]
     Active Substance: ALCOHOL
     Dates: start: 20210913, end: 20211010

REACTIONS (1)
  - Rash [None]

NARRATIVE: CASE EVENT DATE: 20210921
